FAERS Safety Report 6930120-9 (Version None)
Quarter: 2010Q3

REPORT INFORMATION
  Report Type: 
  Country: None (occurrence: None)
  Receive Date: 20100818
  Receipt Date: 20100811
  Transmission Date: 20110219
  Serious: Yes (Other)
  Sender: FDA-Public Use
  Company Number: US-SANOFI-AVENTIS-2010SA048186

PATIENT
  Age: 84 Year
  Sex: Female

DRUGS (2)
  1. LANTUS [Suspect]
     Dosage: DOSE:52 UNIT(S)
     Route: 058
  2. SOLOSTAR [Suspect]

REACTIONS (3)
  - CARDIAC DISORDER [None]
  - DYSPNOEA [None]
  - LUNG DISORDER [None]
